FAERS Safety Report 15640841 (Version 3)
Quarter: 2018Q4

REPORT INFORMATION
  Report Type: Spontaneous
  Country: CA (occurrence: CA)
  Receive Date: 20181120
  Receipt Date: 20181212
  Transmission Date: 20190205
  Serious: Yes (Other)
  Sender: FDA-Public Use
  Company Number: CA-CELLTRION INC.-2016CA013359

PATIENT

DRUGS (18)
  1. INFLECTRA [Suspect]
     Active Substance: INFLIXIMAB-DYYB
     Indication: ANKYLOSING SPONDYLITIS
     Dosage: 200 MG CYCLIC (EVERY 0,2,6, WEEKS THEN EVERY 8 WEEKS FOR 6 MONTHS)
     Route: 042
     Dates: start: 20161108
  2. INFLECTRA [Suspect]
     Active Substance: INFLIXIMAB-DYYB
     Dosage: 150 MG, EVERY 6 WEEKS
     Route: 042
     Dates: start: 20180703, end: 20180703
  3. INFLECTRA [Suspect]
     Active Substance: INFLIXIMAB-DYYB
     Dosage: 200MG, EVERY 6 WEEKS
     Route: 042
     Dates: start: 20180814, end: 20181106
  4. LORAZEPAM. [Concomitant]
     Active Substance: LORAZEPAM
     Dosage: 1 MG, UNK
     Route: 060
     Dates: start: 20161108
  5. INFLECTRA [Suspect]
     Active Substance: INFLIXIMAB-DYYB
     Dosage: 200 MG, UNK
     Route: 042
     Dates: start: 20170801
  6. INFLECTRA [Suspect]
     Active Substance: INFLIXIMAB-DYYB
     Dosage: 200MG, EVERY 6 WEEKS
     Route: 042
     Dates: start: 20170328, end: 20170620
  7. INFLECTRA [Suspect]
     Active Substance: INFLIXIMAB-DYYB
     Dosage: 200MG, Q (EVERY)0,2, 6 WEEKS THEN EVERY 8 WEEKS
     Route: 042
     Dates: start: 20161108, end: 20170214
  8. INFLECTRA [Suspect]
     Active Substance: INFLIXIMAB-DYYB
     Dosage: 200 MG, CYCLIC (THEN EVERY 6 WEEKS)
     Route: 042
     Dates: start: 20170330
  9. INFLECTRA [Suspect]
     Active Substance: INFLIXIMAB-DYYB
     Dosage: 150 MG, CYCLIC EVERY 6 WEEKS
     Route: 042
  10. INFLECTRA [Suspect]
     Active Substance: INFLIXIMAB-DYYB
     Dosage: 150 MG, EVERY 6 WEEKS
     Route: 042
     Dates: start: 20170801, end: 20180703
  11. COVERSYL                           /00790702/ [Concomitant]
     Active Substance: PERINDOPRIL
     Dosage: 4 MG, UNK
  12. INFLECTRA [Suspect]
     Active Substance: INFLIXIMAB-DYYB
     Dosage: 150 MG, CYCLIC EVERY 6 WEEKS
     Route: 042
     Dates: start: 20170801
  13. INFLECTRA [Suspect]
     Active Substance: INFLIXIMAB-DYYB
     Dosage: 200MG, EVERY 6 WEEKS
     Route: 042
  14. APO-TRAMADOL [Concomitant]
     Active Substance: TRAMADOL
     Dosage: UNK
  15. INFLECTRA [Suspect]
     Active Substance: INFLIXIMAB-DYYB
     Dosage: 150 MG, CYCLIC EVERY 6 WEEKS
     Route: 042
     Dates: start: 20180522
  16. INFLECTRA [Suspect]
     Active Substance: INFLIXIMAB-DYYB
     Dosage: 200 MG (EVERY 0,2,6,WEEKS, THEN EVERY 8 WEEKS FOR 6 MONTHS)
     Route: 042
     Dates: start: 20161220
  17. PROZAC [Concomitant]
     Active Substance: FLUOXETINE HYDROCHLORIDE
     Dosage: UNK
  18. INFLECTRA [Suspect]
     Active Substance: INFLIXIMAB-DYYB
     Dosage: 200 MG, EVERY 6 WEEKS
     Route: 042

REACTIONS (18)
  - Syncope [Unknown]
  - Back pain [Not Recovered/Not Resolved]
  - Arthralgia [Not Recovered/Not Resolved]
  - Blood pressure fluctuation [Not Recovered/Not Resolved]
  - Diarrhoea [Recovered/Resolved]
  - Nausea [Recovered/Resolved]
  - Vomiting [Recovered/Resolved]
  - Off label use [Unknown]
  - Hypoaesthesia [Unknown]
  - Fall [Unknown]
  - Rash generalised [Not Recovered/Not Resolved]
  - Abdominal pain upper [Recovered/Resolved]
  - Mycobacterium tuberculosis complex test positive [Unknown]
  - Gallbladder disorder [Unknown]
  - Eczema [Recovering/Resolving]
  - Dizziness [Recovered/Resolved]
  - Headache [Recovering/Resolving]
  - Headache [Unknown]

NARRATIVE: CASE EVENT DATE: 201611
